FAERS Safety Report 4873292-2 (Version None)
Quarter: 2005Q4

REPORT INFORMATION
  Report Type: 
  Country: None (occurrence: None)
  Receive Date: 20051229
  Receipt Date: 20051212
  Transmission Date: 20060501
  Serious: Yes (Other)
  Sender: FDA-Public Use
  Company Number: 2005BH003432

PATIENT
  Age: 7 Year
  Sex: Male

DRUGS (4)
  1. ADVATE [Suspect]
     Indication: PROPHYLAXIS
     Dosage: 1050 UNITS; Q OTHER DY;
  2. ADVATE [Suspect]
  3. ADVATE [Suspect]
  4. REFACTO [Concomitant]

REACTIONS (11)
  - ANAPHYLACTIC REACTION [None]
  - DYSPNOEA [None]
  - ERYTHEMA [None]
  - EYE SWELLING [None]
  - FLUSHING [None]
  - HAEMARTHROSIS [None]
  - OCULAR HYPERAEMIA [None]
  - PRURITUS [None]
  - RASH [None]
  - SWELLING FACE [None]
  - URTICARIA [None]
